FAERS Safety Report 26133661 (Version 1)
Quarter: 2025Q4

REPORT INFORMATION
  Report Type: Spontaneous
  Country: US (occurrence: US)
  Receive Date: 20251209
  Receipt Date: 20251209
  Transmission Date: 20260117
  Serious: Yes (Other)
  Sender: PACIRA
  Company Number: US-ORG100016242-2025000486

PATIENT
  Age: 8 Year
  Sex: Male
  Weight: 26.7 kg

DRUGS (11)
  1. BUPIVACAINE [Suspect]
     Active Substance: BUPIVACAINE
     Indication: Nerve block
     Route: 050
  2. BUPIVACAINE [Suspect]
     Active Substance: BUPIVACAINE
     Indication: Nerve block
     Route: 050
  3. DEXAMETHASONE [Suspect]
     Active Substance: DEXAMETHASONE
     Indication: Nerve block
     Route: 050
  4. ISOTONIC SODIUM CHLORIDE SOLUTION [Suspect]
     Active Substance: SODIUM CHLORIDE
     Indication: Nerve block
     Dosage: FEW MILLILITERS
     Route: 050
  5. KETAMINE [Suspect]
     Active Substance: KETAMINE
     Indication: Intraoperative care
     Dosage: 1.87 MG/KG
     Route: 042
  6. UNSPECIFIED INGREDIENT [Concomitant]
     Active Substance: UNSPECIFIED INGREDIENT
     Indication: General anaesthesia
     Dosage: NOT PROVIDED
     Route: 065
  7. FENTANYL [Concomitant]
     Active Substance: FENTANYL
     Indication: Intraoperative care
     Dosage: 2.25 MCG/KG
     Route: 042
  8. METHADONE [Concomitant]
     Active Substance: METHADONE HYDROCHLORIDE
     Indication: Intraoperative care
     Dosage: 0.22 MG/KG
     Route: 042
  9. ACETAMINOPHEN [Concomitant]
     Active Substance: ACETAMINOPHEN
     Indication: Intraoperative care
     Dosage: 14.98 MG/KG
     Route: 042
  10. HEPARIN [Concomitant]
     Active Substance: HEPARIN SODIUM
     Indication: Product used for unknown indication
     Dosage: 4500 UNITS
     Route: 065
  11. PROTAMINE [Concomitant]
     Active Substance: PROTAMINE
     Indication: Product used for unknown indication
     Route: 065

REACTIONS (6)
  - Hallucination [Recovered/Resolved]
  - Off label use [Unknown]
  - Hypoaesthesia [Recovered/Resolved]
  - Diplopia [Recovered/Resolved]
  - Headache [Recovered/Resolved]
  - Labelled drug-drug interaction medication error [Unknown]
